FAERS Safety Report 11790591 (Version 1)
Quarter: 2015Q4

REPORT INFORMATION
  Report Type: Spontaneous
  Country: US (occurrence: US)
  Receive Date: 20151201
  Receipt Date: 20151201
  Transmission Date: 20160305
  Serious: No
  Sender: FDA-Public Use
  Company Number: US-PFIZER INC-2015409333

PATIENT
  Age: 39 Year
  Sex: Female
  Weight: 159 kg

DRUGS (2)
  1. CHANTIX [Suspect]
     Active Substance: VARENICLINE TARTRATE
     Indication: SMOKING CESSATION THERAPY
     Dosage: 0.5 MG, 2X/DAY, ONCE IN THE MORNING AND ONCE IN THE EVENING
     Route: 048
  2. CHANTIX [Suspect]
     Active Substance: VARENICLINE TARTRATE
     Dosage: 1 MG, 2X/DAY, ONCE IN THE MORNING AND ONCE IN THE EVENING
     Route: 048

REACTIONS (2)
  - Abnormal dreams [Not Recovered/Not Resolved]
  - Tobacco user [Not Recovered/Not Resolved]
